FAERS Safety Report 21505518 (Version 1)
Quarter: 2022Q4

REPORT INFORMATION
  Report Type: Report from Study
  Country: US (occurrence: US)
  Receive Date: 20221026
  Receipt Date: 20221026
  Transmission Date: 20230112
  Serious: Yes (Other)
  Sender: FDA-Public Use
  Company Number: US-ABBVIE-4173124

PATIENT
  Sex: Male

DRUGS (22)
  1. VENCLEXTA [Suspect]
     Active Substance: VENETOCLAX
     Indication: Acute myeloid leukaemia
     Route: 048
  2. SPIRIVA, [Concomitant]
     Indication: Product used for unknown indication
  3. ACETAMINOPHEN, [Concomitant]
     Indication: Product used for unknown indication
  4. PROCHLORPERAZINE, [Concomitant]
     Indication: Product used for unknown indication
  5. MILK OF MAGNESIA, [Concomitant]
     Indication: Product used for unknown indication
  6. LEVAQUIN, [Concomitant]
     Indication: Product used for unknown indication
  7. NARCAN, [Concomitant]
     Indication: Product used for unknown indication
  8. POLYETHYLENE, [Concomitant]
     Indication: Product used for unknown indication
  9. LORATADINE, [Concomitant]
     Indication: Product used for unknown indication
  10. ALBUTEROL SULFATE HFA, [Concomitant]
     Indication: Product used for unknown indication
  11. OXYCODONE, [Concomitant]
     Indication: Product used for unknown indication
  12. DIPHENHYDRAMINE, [Concomitant]
     Indication: Product used for unknown indication
  13. METOPROLOL, [Concomitant]
     Indication: Product used for unknown indication
  14. VOLTAREN [Concomitant]
     Active Substance: DICLOFENAC SODIUM
     Indication: Product used for unknown indication
  15. SENNA, [Concomitant]
     Indication: Product used for unknown indication
  16. ACYCLOVIR, [Concomitant]
     Indication: Product used for unknown indication
  17. MAGOX, [Concomitant]
     Indication: Product used for unknown indication
  18. ALLOPURINOL, [Concomitant]
     Indication: Product used for unknown indication
  19. FLONASE, [Concomitant]
     Indication: Product used for unknown indication
  20. AMIODARONE, [Concomitant]
     Indication: Product used for unknown indication
  21. PANTOPRAZOLE, [Concomitant]
     Indication: Product used for unknown indication
  22. ADVAIR DISKUS, [Concomitant]
     Indication: Product used for unknown indication

REACTIONS (2)
  - Transfusion [Unknown]
  - Fatigue [Not Recovered/Not Resolved]
